FAERS Safety Report 21871476 (Version 1)
Quarter: 2023Q1

REPORT INFORMATION
  Report Type: Spontaneous
  Country: US (occurrence: None)
  Receive Date: 20230113
  Receipt Date: 20230113
  Transmission Date: 20230418
  Serious: No
  Sender: FDA-Public Use
  Company Number: None

PATIENT
  Age: 75 Year
  Sex: Male
  Weight: 66.0 kg

DRUGS (11)
  1. CAPECITABINE [Suspect]
     Active Substance: CAPECITABINE
     Indication: Pancreatic carcinoma
     Dosage: 500-1000MG TWICE DAILY ORAL? ?
     Route: 048
  2. CLARITIN [Concomitant]
     Active Substance: LORATADINE
  3. LANTUS [Concomitant]
     Active Substance: INSULIN GLARGINE
  4. MESALAMINE [Concomitant]
     Active Substance: MESALAMINE
  5. METFORMIN [Concomitant]
     Active Substance: METFORMIN HYDROCHLORIDE
  6. OMEGA 3 [Concomitant]
     Active Substance: CAPSAICIN
  7. PRAVASTATIN [Concomitant]
     Active Substance: PRAVASTATIN
  8. TESTOSTERONE [Concomitant]
     Active Substance: TESTOSTERONE
  9. VITAMIN D3 [Concomitant]
     Active Substance: CHOLECALCIFEROL
  10. XARELTO [Concomitant]
     Active Substance: RIVAROXABAN
  11. XENPEP [Concomitant]

REACTIONS (2)
  - Disease progression [None]
  - Therapy cessation [None]
